FAERS Safety Report 9173803 (Version 3)
Quarter: 2013Q2

REPORT INFORMATION
  Report Type: Spontaneous
  Country: US (occurrence: None)
  Receive Date: 20130318
  Receipt Date: 20130621
  Transmission Date: 20140414
  Serious: Yes (Hospitalization, Other)
  Sender: FDA-Public Use
  Company Number: ACO_34735_2013

PATIENT
  Age: 60 Year
  Sex: Female
  Weight: 74.8 kg

DRUGS (10)
  1. AMPYRA [Suspect]
     Indication: GAIT DISTURBANCE
     Route: 048
     Dates: start: 2010, end: 201302
  2. TRAMADOL [Suspect]
     Indication: PAIN
     Route: 048
  3. COPAXONE (GLATIRAMER ACETATE) [Concomitant]
  4. ZOCOR (SIMVASTATIN) [Concomitant]
  5. LOSARTAN (LOSARTAN POTASSIUM) [Concomitant]
  6. BACLOFEN (BACLOFEN) [Concomitant]
  7. REQUIP (ROPINIROLE HYDROCHLORIDE) [Concomitant]
  8. LIPITOR (ATORVASTATIN CALCIUM) [Concomitant]
  9. ANTIHYPERTENSIVES [Concomitant]
  10. ZANAFLEX (TIZANIDINE HYDROCHLORIDE) [Concomitant]

REACTIONS (9)
  - Convulsion [None]
  - Presyncope [None]
  - Memory impairment [None]
  - Abdominal discomfort [None]
  - Arthralgia [None]
  - Myalgia [None]
  - Malaise [None]
  - Urinary tract infection [None]
  - Nausea [None]
